FAERS Safety Report 9178739 (Version 1)
Quarter: 2012Q4

REPORT INFORMATION
  Report Type: 
  Country: US (occurrence: US)
  Receive Date: 20121029
  Receipt Date: 20121029
  Transmission Date: 20130627
  Serious: No
  Sender: FDA-Public Use
  Company Number: US-AMGEN-USASP2012053354

PATIENT
  Sex: Female
  Weight: 72.56 kg

DRUGS (11)
  1. ENBREL [Suspect]
     Indication: PRODUCT USED FOR UNKNOWN INDICATION
     Dosage: 50 mg/ml, qwk
     Route: 058
  2. METOPROLOL [Concomitant]
     Dosage: 1 mg/ml, UNK
  3. SIMVASTATIN [Concomitant]
     Dosage: 10 mg, UNK
  4. LOSARTAN/HYDROCHLOORTHIAZIDE [Concomitant]
     Dosage: 100-12.5
  5. ASPIRIN [Concomitant]
     Dosage: 325 mg, UNK
  6. CALCIUM [Concomitant]
     Dosage: 600 UNK, UNK
  7. VITAMIN D /00107901/ [Concomitant]
     Dosage: 400 unit, UNK
  8. FISH OIL [Concomitant]
     Dosage: UNK
  9. MULTIVITAMINS [Concomitant]
     Dosage: UNK
  10. METHOTREXATE [Concomitant]
     Dosage: 20 mg, UNK
  11. FOLIC ACID [Concomitant]
     Dosage: UNK

REACTIONS (1)
  - Nodule [Unknown]
